FAERS Safety Report 26211852 (Version 1)
Quarter: 2025Q4

REPORT INFORMATION
  Report Type: Spontaneous
  Country: US (occurrence: US)
  Receive Date: 20251230
  Receipt Date: 20251230
  Transmission Date: 20260117
  Serious: No
  Sender: SANOFI AVENTIS
  Company Number: US-SA-2025SA385673

PATIENT
  Age: 22 Year
  Sex: Female

DRUGS (4)
  1. DUPIXENT [Suspect]
     Active Substance: DUPILUMAB
     Indication: Urticaria
     Dosage: 300 MG, QOW
     Route: 058
     Dates: start: 202506
  2. XOLAIR [Concomitant]
     Active Substance: OMALIZUMAB
     Dosage: UNK
  3. GATTEX [Concomitant]
     Active Substance: TEDUGLUTIDE\WATER
     Dosage: UNK
  4. RUCONEST [Concomitant]
     Active Substance: CONESTAT ALFA
     Dosage: UNK
     Dates: start: 202510

REACTIONS (1)
  - Product use in unapproved indication [Unknown]

NARRATIVE: CASE EVENT DATE: 20250601
